FAERS Safety Report 9916611 (Version 1)
Quarter: 2014Q1

REPORT INFORMATION
  Report Type: Spontaneous
  Country: US (occurrence: US)
  Receive Date: 20140221
  Receipt Date: 20140221
  Transmission Date: 20141002
  Serious: Yes (Hospitalization)
  Sender: FDA-Public Use
  Company Number: US-AMGEN-USASP2014012079

PATIENT
  Age: 69 Year
  Sex: Female

DRUGS (4)
  1. NEULASTA [Suspect]
     Indication: NEUTROPENIA
     Dosage: UNK
     Route: 065
     Dates: start: 20140205
  2. ADRIAMYCIN                         /00330901/ [Concomitant]
     Indication: LEIOMYOSARCOMA
     Dosage: UNK
     Dates: start: 20140203
  3. CYCLOPHOSPHAMIDE [Concomitant]
     Indication: LEIOMYOSARCOMA
     Dosage: UNK
     Dates: start: 20140203
  4. MESNA [Concomitant]
     Dosage: UNK

REACTIONS (2)
  - Sepsis [Unknown]
  - Drug ineffective [Unknown]
